FAERS Safety Report 11491827 (Version 3)
Quarter: 2015Q4

REPORT INFORMATION
  Report Type: Report from Study
  Country: DE (occurrence: DE)
  Receive Date: 20150910
  Receipt Date: 20151125
  Transmission Date: 20160304
  Serious: Yes (Hospitalization)
  Sender: FDA-Public Use
  Company Number: DE-BAXALTA-2015BLT001518

PATIENT
  Age: 9 Year
  Sex: Male
  Weight: 49.8 kg

DRUGS (4)
  1. FEIBA NF [Suspect]
     Active Substance: ANTI-INHIBITOR COAGULANT COMPLEX
     Indication: HAEMORRHAGE PROPHYLAXIS
     Dosage: 5000 IU, 2X A DAY
     Route: 042
     Dates: start: 20150830
  2. FEIBA NF [Suspect]
     Active Substance: ANTI-INHIBITOR COAGULANT COMPLEX
     Indication: FACTOR VIII DEFICIENCY
     Dosage: 5000 IU, 1X A DAY
     Route: 042
     Dates: start: 20150830
  3. INSULIN [Concomitant]
     Active Substance: INSULIN NOS
     Indication: TYPE 1 DIABETES MELLITUS
     Dosage: UNK
     Route: 058
     Dates: start: 201402
  4. FEIBA NF [Suspect]
     Active Substance: ANTI-INHIBITOR COAGULANT COMPLEX
     Indication: HAEMORRHAGE
     Dosage: 5000 IU, 1X A DAY
     Route: 042
     Dates: start: 20150831

REACTIONS (3)
  - Central venous catheter removal [Recovering/Resolving]
  - Device related infection [Recovering/Resolving]
  - Skin wound [Recovering/Resolving]

NARRATIVE: CASE EVENT DATE: 20150830
